FAERS Safety Report 13657250 (Version 1)
Quarter: 2017Q2

REPORT INFORMATION
  Report Type: Spontaneous
  Country: CN (occurrence: CN)
  Receive Date: 20170615
  Receipt Date: 20170615
  Transmission Date: 20170830
  Serious: Yes (Other)
  Sender: FDA-Public Use
  Company Number: CN-MYLANLABS-2017M1036004

PATIENT

DRUGS (10)
  1. PREDNISONE. [Suspect]
     Active Substance: PREDNISONE
     Indication: NEPHROTIC SYNDROME
     Dosage: 30 MG/DAY
     Route: 065
  2. TRIAMCINOLONE [Suspect]
     Active Substance: TRIAMCINOLONE
     Indication: NEPHROTIC SYNDROME
     Dosage: 28 MG/DAY
     Route: 065
     Dates: start: 20150714
  3. VALSARTAN. [Concomitant]
     Active Substance: VALSARTAN
     Indication: PRODUCT USED FOR UNKNOWN INDICATION
     Dosage: EVERY NIGHT
     Route: 065
  4. VITAMIN D                          /00107901/ [Concomitant]
     Active Substance: ERGOCALCIFEROL
     Indication: NEPHROTIC SYNDROME
     Dosage: ONCE A DAY
     Route: 065
  5. AMBROXOL [Concomitant]
     Active Substance: AMBROXOL
     Indication: UPPER RESPIRATORY TRACT INFECTION
     Dosage: SOLUTION OF AMBROXOL AND CLENBUTEROL (7.5 ML, TWICE A DAY)
     Route: 048
     Dates: start: 20150723, end: 20150726
  6. CALCIUM [Concomitant]
     Active Substance: CALCIUM
     Indication: NEPHROTIC SYNDROME
     Dosage: ONCE A DAY
     Route: 065
  7. PIPERAZINE [Concomitant]
     Active Substance: PIPERAZINE
     Indication: NEPHROTIC SYNDROME
     Dosage: ONCE A DAY
     Route: 065
  8. ASTRAGALUS PROPINQUUS [Concomitant]
     Indication: NEPHROTIC SYNDROME
     Route: 065
  9. CLENBUTEROL [Concomitant]
     Active Substance: CLENBUTEROL
     Indication: UPPER RESPIRATORY TRACT INFECTION
     Dosage: SOLUTION OF AMBROXOL AND CLENBUTEROL (7.5 ML, TWICE A DAY)
     Route: 048
     Dates: start: 20150723, end: 20150726
  10. AZITHROMYCIN ANHYDROUS. [Concomitant]
     Active Substance: AZITHROMYCIN ANHYDROUS
     Indication: UPPER RESPIRATORY TRACT INFECTION
     Route: 065

REACTIONS (1)
  - Epilepsy [Recovering/Resolving]

NARRATIVE: CASE EVENT DATE: 20150729
